FAERS Safety Report 6230328-4 (Version None)
Quarter: 2009Q2

REPORT INFORMATION
  Report Type: 
  Country: None (occurrence: None)
  Receive Date: 20090611
  Receipt Date: 20090604
  Transmission Date: 20091009
  Serious: Yes (Death)
  Sender: FDA-Public Use
  Company Number: GXKR2009US06448

PATIENT
  Age: 27 Year
  Sex: Female

DRUGS (7)
  1. METHADONE HCL [Suspect]
     Indication: MUSCULOSKELETAL PAIN
     Dosage: 10 MG, AT NIGHT
  2. DIAZEPAM [Suspect]
  3. TEMAZEPAM [Suspect]
  4. DOXEPIN (NGX) (DOXEPIN) [Suspect]
  5. HYDROCODONE (HYDROCODONE) [Concomitant]
     Indication: MUSCULOSKELETAL PAIN
     Dosage: 10 MG, QID,  7.5 MG,QID AS PER NEEDED
     Route: 048
  6. HYDROCODONE (HYDROCODONE) [Concomitant]
     Indication: MUSCULOSKELETAL PAIN
     Dosage: 10 MG, QID,  7.5 MG,QID AS PER NEEDED
     Route: 048
  7. NORDAZEPAM (NORDAZEPAM) [Suspect]
     Indication: MUSCULOSKELETAL PAIN

REACTIONS (2)
  - MULTIPLE DRUG OVERDOSE [None]
  - SYNCOPE [None]
